FAERS Safety Report 18845707 (Version 2)
Quarter: 2021Q1

REPORT INFORMATION
  Report Type: Spontaneous
  Country: RU (occurrence: RU)
  Receive Date: 20210204
  Receipt Date: 20210216
  Transmission Date: 20210419
  Serious: Yes (Death, Hospitalization)
  Sender: FDA-Public Use
  Company Number: RU-LUPIN PHARMACEUTICALS INC.-2021-01009

PATIENT
  Age: 32 Year
  Sex: Female

DRUGS (13)
  1. VITAMIN B [Suspect]
     Active Substance: VITAMIN B
     Indication: ANAEMIA
     Dosage: UNK
     Route: 065
     Dates: start: 201807, end: 201808
  2. LAMIVUDINE. [Suspect]
     Active Substance: LAMIVUDINE
     Indication: PARVOVIRUS B19 INFECTION
     Dosage: UNK, FIRST LINE THERAPY
     Route: 065
     Dates: start: 201809
  3. LAMIVUDINE. [Suspect]
     Active Substance: LAMIVUDINE
     Dosage: UNK, SECOND LINE THERAPY
     Route: 065
     Dates: start: 201901
  4. LAMIVUDINE. [Suspect]
     Active Substance: LAMIVUDINE
     Dosage: UNK, THIRD LINE THERAPY
     Route: 065
     Dates: start: 201903
  5. ABACAVIR SULFATE. [Suspect]
     Active Substance: ABACAVIR SULFATE
     Dosage: UNK, THIRD LINE THERAPY
     Route: 065
     Dates: start: 201903
  6. TENOFOVIRDISOPROXIL [Suspect]
     Active Substance: TENOFOVIR DISOPROXIL
     Indication: PARVOVIRUS B19 INFECTION
     Dosage: UNK
     Route: 065
     Dates: start: 201809
  7. ABACAVIR SULFATE. [Suspect]
     Active Substance: ABACAVIR SULFATE
     Indication: PARVOVIRUS B19 INFECTION
     Dosage: UNK, SECOND LINE THERAPY
     Route: 065
     Dates: start: 201901
  8. ATAZANAVIR. [Suspect]
     Active Substance: ATAZANAVIR
     Indication: PARVOVIRUS B19 INFECTION
     Dosage: UNK, THIRD LINE THERAPY
     Route: 065
     Dates: start: 201903
  9. RITONAVIR. [Suspect]
     Active Substance: RITONAVIR
     Indication: PARVOVIRUS B19 INFECTION
     Dosage: UNK
     Route: 065
     Dates: start: 201901
  10. EFAVIRENZ. [Suspect]
     Active Substance: EFAVIRENZ
     Indication: PARVOVIRUS B19 INFECTION
     Dosage: UNK, FIRST LINE THERAPY
     Route: 065
     Dates: start: 201809
  11. FOSAMPRENAVIR [Suspect]
     Active Substance: FOSAMPRENAVIR
     Indication: PARVOVIRUS B19 INFECTION
     Dosage: UNK, SECOND LINE THERAPY
     Route: 065
     Dates: start: 201901
  12. ERYTHROPOIETIN [Suspect]
     Active Substance: ERYTHROPOIETIN
     Indication: ANAEMIA
     Dosage: UNK
     Route: 065
     Dates: start: 201807, end: 201808
  13. IRON [Suspect]
     Active Substance: IRON
     Indication: ANAEMIA
     Dosage: UNK
     Route: 065
     Dates: start: 201807, end: 201808

REACTIONS (1)
  - Drug ineffective [Unknown]
